FAERS Safety Report 16184303 (Version 1)
Quarter: 2019Q2

REPORT INFORMATION
  Report Type: Spontaneous
  Country: US (occurrence: US)
  Receive Date: 20190411
  Receipt Date: 20190411
  Transmission Date: 20190711
  Serious: No
  Sender: FDA-Public Use
  Company Number: US-PFIZER INC-2019149399

PATIENT
  Age: 62 Year
  Sex: Female
  Weight: 134.26 kg

DRUGS (2)
  1. AMLODIPINE BESILATE [Suspect]
     Active Substance: AMLODIPINE BESYLATE
     Indication: HYPERTENSION
     Dosage: UNK
  2. METOPROLOL. [Concomitant]
     Active Substance: METOPROLOL
     Dosage: UNK

REACTIONS (9)
  - Dyspnoea [Unknown]
  - Extrasystoles [Unknown]
  - Drug ineffective [Unknown]
  - Heart rate irregular [Unknown]
  - Pain [Unknown]
  - Renal disorder [Unknown]
  - Headache [Unknown]
  - Heart rate increased [Unknown]
  - Insomnia [Unknown]
